FAERS Safety Report 4359006-3 (Version None)
Quarter: 2004Q2

REPORT INFORMATION
  Report Type: 
  Country: None (occurrence: None)
  Receive Date: 20040512
  Receipt Date: 20040430
  Transmission Date: 20050107
  Serious: Yes (Other)
  Sender: FDA-Public Use
  Company Number: DE-JNJFOC-20040202812

PATIENT
  Age: 45 Year
  Sex: Male

DRUGS (7)
  1. TOPAMAX [Suspect]
     Indication: EPILEPSY
     Dosage: 400 MG, 2 IN 1 DAY, ORAL
     Route: 048
     Dates: start: 20010910, end: 20030310
  2. PARKOTIL (PERGOLIDE MESILATE) UNKNOWN [Suspect]
     Indication: PARKINSON'S DISEASE
     Dosage: 0.2 MG, IN 1 DAY,; 1 MG, IN 1 DAY,
     Dates: start: 19960101
  3. COMTESS (ENTACAPONE) UNKNOWN [Suspect]
     Dosage: 200 MG, 4 IN 1 DAY, ORAL
     Route: 048
     Dates: start: 20010101
  4. MADOPAR (MADOPAR) UNKNOWN [Suspect]
     Indication: PARKINSON'S DISEASE
     Dosage: 62.5 MG, 3 IN 1 DAY,
     Dates: start: 19950101
  5. AMANTADIN (AMANTADINE HYDROCHLORIDE) UNKNOWN [Concomitant]
  6. TEGRETOL [Concomitant]
  7. REMERGIL (MIRTAZAPINE) UNKNOWN [Concomitant]

REACTIONS (6)
  - BRADYPHRENIA [None]
  - DEPRESSION [None]
  - DRUG INEFFECTIVE [None]
  - DRUG INTERACTION [None]
  - MEMORY IMPAIRMENT [None]
  - MOVEMENT DISORDER [None]
